FAERS Safety Report 22594588 (Version 1)
Quarter: 2023Q2

REPORT INFORMATION
  Report Type: Spontaneous
  Country: US (occurrence: None)
  Receive Date: 20230612
  Receipt Date: 20230612
  Transmission Date: 20230722
  Serious: No
  Sender: FDA-Public Use
  Company Number: None

PATIENT
  Sex: Female

DRUGS (1)
  1. COSENTYX [Suspect]
     Active Substance: SECUKINUMAB

REACTIONS (6)
  - Lip pruritus [None]
  - Lip erythema [None]
  - Lip blister [None]
  - Erythema [None]
  - Pruritus [None]
  - Blister [None]
